FAERS Safety Report 8377115-9 (Version None)
Quarter: 2012Q2

REPORT INFORMATION
  Report Type: 
  Country: None (occurrence: None)
  Receive Date: 20120522
  Receipt Date: 20120515
  Transmission Date: 20120825
  Serious: Yes (Other)
  Sender: FDA-Public Use
  Company Number: CA-ROCHE-GNE296842

PATIENT
  Sex: Female

DRUGS (26)
  1. SPIRIVA [Concomitant]
     Indication: PRODUCT USED FOR UNKNOWN INDICATION
  2. DOCUSATE [Concomitant]
  3. TRAZODONE HCL [Concomitant]
  4. ZOLEDRONOC ACID [Concomitant]
  5. XOLAIR [Suspect]
     Dosage: 300 MG, Q2W
     Route: 058
     Dates: start: 20100204
  6. OXEZE [Concomitant]
     Indication: PRODUCT USED FOR UNKNOWN INDICATION
  7. TRIQUILAR [Concomitant]
  8. CALCIUM [Concomitant]
     Indication: PRODUCT USED FOR UNKNOWN INDICATION
  9. VITAMIN D [Concomitant]
     Indication: PRODUCT USED FOR UNKNOWN INDICATION
  10. RASILEZ [Concomitant]
  11. IMMUNE GLOBULIN NOS [Concomitant]
  12. LACTULOSE [Concomitant]
  13. AMPHOTERICIN B [Concomitant]
  14. CELEXA [Concomitant]
  15. METFORMIN HCL [Concomitant]
  16. PREDNISONE TAB [Concomitant]
     Indication: PRODUCT USED FOR UNKNOWN INDICATION
     Dosage: 30 MG, UNK
  17. VENTOLIN [Concomitant]
     Indication: PRODUCT USED FOR UNKNOWN INDICATION
  18. ALVESCO [Concomitant]
     Indication: PRODUCT USED FOR UNKNOWN INDICATION
  19. SPIRONOLACTONE [Concomitant]
  20. VERAPAMIL [Concomitant]
  21. FERROUS FUMARATE [Concomitant]
  22. XOLAIR [Suspect]
     Indication: ASTHMA
     Dosage: 300 MG, Q2W
     Route: 058
     Dates: start: 20050425
  23. FLONASE [Concomitant]
     Indication: PRODUCT USED FOR UNKNOWN INDICATION
  24. SYMBICORT [Concomitant]
     Indication: PRODUCT USED FOR UNKNOWN INDICATION
  25. NEXIUM [Concomitant]
     Indication: PRODUCT USED FOR UNKNOWN INDICATION
  26. HYDROCHLOROTHIAZIDE [Concomitant]

REACTIONS (11)
  - PHARYNGITIS [None]
  - FOOT FRACTURE [None]
  - NASAL CONGESTION [None]
  - MULTIPLE FRACTURES [None]
  - PATHOLOGICAL FRACTURE [None]
  - BRONCHITIS [None]
  - HAEMOPHILUS TEST POSITIVE [None]
  - RIB FRACTURE [None]
  - NASOPHARYNGITIS [None]
  - ANKLE FRACTURE [None]
  - STREPTOCOCCAL INFECTION [None]
